FAERS Safety Report 5564876-7 (Version None)
Quarter: 2007Q4

REPORT INFORMATION
  Report Type: 
  Country: None (occurrence: None)
  Receive Date: 20071213
  Receipt Date: 20071206
  Transmission Date: 20080405
  Serious: Yes (Hospitalization)
  Sender: FDA-Public Use
  Company Number: 2007-05575

PATIENT
  Age: 85 Year
  Sex: Female

DRUGS (4)
  1. PROPRANOLOL [Suspect]
     Indication: ATRIAL FIBRILLATION
     Dosage: 1 MG, 4 DOSES IN 18 HOURS), IV BOLUS, 20 MG, Q8H, ORAL
     Route: 048
     Dates: start: 20070101, end: 20070101
  2. PROPRANOLOL [Suspect]
     Indication: ATRIAL FIBRILLATION
     Dosage: 1 MG, 4 DOSES IN 18 HOURS), IV BOLUS, 20 MG, Q8H, ORAL
     Route: 048
     Dates: start: 20070101, end: 20070101
  3. PROPYLTHIOURACIL [Concomitant]
  4. AMPICILLIN [Concomitant]

REACTIONS (7)
  - APNOEA [None]
  - ATRIAL FIBRILLATION [None]
  - BRADYCARDIA [None]
  - CARDIAC FAILURE CONGESTIVE [None]
  - CIRCULATORY COLLAPSE [None]
  - HYPOTENSION [None]
  - PNEUMONIA [None]
